FAERS Safety Report 7685182-0 (Version None)
Quarter: 2011Q3

REPORT INFORMATION
  Report Type: 
  Country: None (occurrence: None)
  Receive Date: 20110816
  Receipt Date: 20110803
  Transmission Date: 20111222
  Serious: Yes (Other)
  Sender: FDA-Public Use
  Company Number: US-CELGENEUS-163-21880-11051172

PATIENT
  Sex: Male

DRUGS (6)
  1. REVLIMID [Suspect]
     Dosage: 25 MILLIGRAM
     Route: 048
     Dates: start: 20110407, end: 20110428
  2. REVLIMID [Suspect]
     Dosage: 25 MILLIGRAM
     Route: 048
     Dates: start: 20110501, end: 20110601
  3. REVLIMID [Suspect]
     Indication: MULTIPLE MYELOMA
     Dosage: 25 MILLIGRAM
     Route: 048
     Dates: start: 20110203
  4. ZOMETA [Suspect]
  5. PERCOCET [Concomitant]
     Route: 065
  6. DECADRON [Concomitant]
     Route: 065
     Dates: start: 20110203

REACTIONS (5)
  - PULMONARY EMBOLISM [None]
  - LEUKOPENIA [None]
  - RHINORRHOEA [None]
  - OSTEONECROSIS [None]
  - COUGH [None]
